FAERS Safety Report 6605119-2 (Version None)
Quarter: 2010Q1

REPORT INFORMATION
  Report Type: 
  Country: None (occurrence: None)
  Receive Date: 20100226
  Receipt Date: 20100218
  Transmission Date: 20100710
  Serious: Yes (Death, Other)
  Sender: FDA-Public Use
  Company Number: TR-ELI_LILLY_AND_COMPANY-TR201002005235

PATIENT
  Age: 71 Year
  Sex: Female

DRUGS (6)
  1. HUMULIN 70/30 [Suspect]
     Indication: DIABETES MELLITUS
     Dosage: 20 IU, UNK
     Route: 058
     Dates: start: 20080618
  2. HUMULIN 70/30 [Suspect]
     Dosage: 28 IU, EACH MORNING
     Route: 058
  3. HUMULIN 70/30 [Suspect]
     Dosage: 20 IU, EACH EVENING
     Route: 058
  4. DELIX [Concomitant]
     Indication: HYPERTENSION
     Dosage: 5 MG, DAILY (1/D)
     Route: 048
     Dates: end: 20100208
  5. NOOTROPIL [Concomitant]
     Indication: VENOUS OCCLUSION
     Dosage: 800 MG, 3/D
     Route: 048
     Dates: end: 20100208
  6. SERTRALINE HYDROCHLORIDE [Concomitant]
     Indication: DEPRESSION
     Dosage: UNK UNK, DAILY (1/D)
     Route: 048
     Dates: end: 20100208

REACTIONS (2)
  - BLOOD GLUCOSE INCREASED [None]
  - MYOCARDIAL INFARCTION [None]
